FAERS Safety Report 7454516-4 (Version None)
Quarter: 2011Q2

REPORT INFORMATION
  Report Type: 
  Country: None (occurrence: None)
  Receive Date: 20110503
  Receipt Date: 20110422
  Transmission Date: 20111010
  Serious: Yes (Other)
  Sender: FDA-Public Use
  Company Number: PHHY2011US18618

PATIENT
  Sex: Female
  Weight: 75 kg

DRUGS (6)
  1. RECLAST [Suspect]
     Dosage: 5 MG,
     Route: 042
     Dates: start: 20080902
  2. RECLAST [Suspect]
     Dosage: 5 MG,
     Route: 042
     Dates: start: 20100923
  3. FOSAMAX [Concomitant]
  4. ICMELOXICAM [Concomitant]
  5. BIACTIVE [Concomitant]
  6. RECLAST [Suspect]
     Dosage: 5 MG,
     Route: 042
     Dates: start: 20090915

REACTIONS (5)
  - MUSCLE INJURY [None]
  - GAIT DISTURBANCE [None]
  - BACK PAIN [None]
  - FALL [None]
  - DYSPHAGIA [None]
